FAERS Safety Report 14779039 (Version 2)
Quarter: 2018Q2

REPORT INFORMATION
  Report Type: Spontaneous
  Country: US (occurrence: US)
  Receive Date: 20180419
  Receipt Date: 20180502
  Transmission Date: 20180711
  Serious: No
  Sender: FDA-Public Use
  Company Number: US-ASTRAZENECA-2018SE36954

PATIENT
  Age: 721 Month
  Sex: Male
  Weight: 137.9 kg

DRUGS (2)
  1. BYDUREON [Suspect]
     Active Substance: EXENATIDE
     Indication: BLOOD GLUCOSE INCREASED
     Route: 058
  2. HUMULIN NOS [Concomitant]
     Active Substance: INSULIN HUMAN
     Indication: DIABETES MELLITUS
     Dosage: 70/30 100 UNITS SUBCUTANEOUSLY TWO TIMES DAILY STARTING
     Route: 058

REACTIONS (5)
  - Nasopharyngitis [Not Recovered/Not Resolved]
  - Device malfunction [Unknown]
  - Wrong technique in device usage process [Unknown]
  - Device leakage [Unknown]
  - Product use issue [Unknown]

NARRATIVE: CASE EVENT DATE: 201803
